FAERS Safety Report 12120351 (Version 1)
Quarter: 2016Q1

REPORT INFORMATION
  Report Type: Spontaneous
  Country: US (occurrence: US)
  Receive Date: 20160226
  Receipt Date: 20160226
  Transmission Date: 20160526
  Serious: No
  Sender: FDA-Public Use
  Company Number: US-BAYER-2016-030980

PATIENT
  Age: 79 Year
  Sex: Male
  Weight: 65.76 kg

DRUGS (3)
  1. MIRALAX [Suspect]
     Active Substance: POLYETHYLENE GLYCOL 3350
     Indication: CONSTIPATION PROPHYLAXIS
     Dosage: 1 DF, QD
     Dates: start: 201601
  2. MIRALAX [Suspect]
     Active Substance: POLYETHYLENE GLYCOL 3350
     Indication: CONSTIPATION PROPHYLAXIS
     Dosage: 1 DF, QD
     Route: 048
     Dates: start: 201512
  3. ENSURE [MINERALS NOS,VITAMINS NOS] [Concomitant]

REACTIONS (5)
  - Painful defaecation [None]
  - Product use issue [None]
  - Weight decreased [None]
  - Drug ineffective [None]
  - Faeces hard [None]

NARRATIVE: CASE EVENT DATE: 201512
